FAERS Safety Report 5950912-2 (Version None)
Quarter: 2008Q4

REPORT INFORMATION
  Report Type: 
  Country: None (occurrence: None)
  Receive Date: 20081112
  Receipt Date: 20081105
  Transmission Date: 20090506
  Serious: Yes (Hospitalization)
  Sender: FDA-Public Use
  Company Number: US-GILEAD-2008-0018119

PATIENT
  Sex: Female
  Weight: 43.13 kg

DRUGS (10)
  1. LETAIRIS [Suspect]
     Indication: PULMONARY ARTERIAL HYPERTENSION
     Route: 048
  2. XANAX [Concomitant]
  3. OXYGEN [Concomitant]
  4. NORVASC [Concomitant]
     Route: 048
  5. ASPIRIN [Concomitant]
     Route: 048
  6. BONIVA [Concomitant]
     Route: 048
  7. PENICILLIN VK [Concomitant]
     Route: 048
  8. RELAFEN [Concomitant]
     Route: 048
  9. NEXIUM [Concomitant]
     Route: 048
  10. MULTI-VITAMIN [Concomitant]
     Route: 048

REACTIONS (2)
  - PNEUMONIA [None]
  - RESPIRATORY DISTRESS [None]
